FAERS Safety Report 4786467-8 (Version None)
Quarter: 2005Q3

REPORT INFORMATION
  Report Type: 
  Country: None (occurrence: None)
  Receive Date: 20050927
  Receipt Date: 20050722
  Transmission Date: 20060218
  Serious: No
  Sender: FDA-Public Use
  Company Number: USA0507103621

PATIENT
  Age: 52 Year
  Sex: Female
  Weight: 66 kg

DRUGS (2)
  1. STRATTERA [Suspect]
     Indication: ATTENTION DEFICIT/HYPERACTIVITY DISORDER
     Dosage: 18 MG DAY
     Dates: start: 20050721
  2. UNISOM [Concomitant]

REACTIONS (5)
  - DECREASED APPETITE [None]
  - DRUG INEFFECTIVE [None]
  - DRY MOUTH [None]
  - FATIGUE [None]
  - SOMNOLENCE [None]
